FAERS Safety Report 7656512-0 (Version None)
Quarter: 2011Q3

REPORT INFORMATION
  Report Type: 
  Country: None (occurrence: None)
  Receive Date: 20110804
  Receipt Date: 20100928
  Transmission Date: 20111222
  Serious: No
  Sender: FDA-Public Use
  Company Number: US-BAUSCH-2010BL005471

PATIENT
  Age: 79 Year
  Sex: Female

DRUGS (4)
  1. CLONIDINE [Concomitant]
     Indication: PAIN
     Route: 048
     Dates: start: 20100927
  2. OPCON-A [Suspect]
     Indication: FOREIGN BODY SENSATION IN EYES
     Route: 047
     Dates: start: 20100928, end: 20100928
  3. EYE STREAM EYE WASH [Concomitant]
     Indication: EYE IRRIGATION
     Route: 047
  4. OPCON-A [Suspect]
     Indication: HYPERSENSITIVITY
     Route: 047
     Dates: start: 20100928, end: 20100928

REACTIONS (2)
  - EYE IRRITATION [None]
  - EYE PAIN [None]
